FAERS Safety Report 7693361-1 (Version None)
Quarter: 2011Q3

REPORT INFORMATION
  Report Type: 
  Country: None (occurrence: None)
  Receive Date: 20110819
  Receipt Date: 20110812
  Transmission Date: 20111222
  Serious: Yes (Other)
  Sender: FDA-Public Use
  Company Number: US-PFIZER INC-2011159247

PATIENT
  Sex: Male
  Weight: 70.3 kg

DRUGS (9)
  1. AMLODIPINE [Concomitant]
     Dosage: 5 MG, 1X/DAY
  2. LEVOTHYROXINE [Concomitant]
     Dosage: 150 MG, 1X/DAY
  3. CODAMINE [Concomitant]
     Dosage: UNK
  4. VENOFER [Concomitant]
     Dosage: UNK
     Dates: start: 20110527
  5. ZEMPLAR [Concomitant]
     Dosage: 2 MG, 1X/DAY
  6. SUTENT [Suspect]
     Indication: RENAL CELL CARCINOMA
     Dosage: 25 MG, 1X/DAY ON DAYS 1-14, 21-DAY CYCLE
     Route: 048
     Dates: start: 20100101
  7. METOPROLOL [Concomitant]
     Dosage: 12.5 MG, 2X/DAY
  8. OMEPRAZOLE [Concomitant]
     Dosage: 10 MG, 1X/DAY
  9. CITALOPRAM [Concomitant]
     Dosage: 20 MG, UNK

REACTIONS (1)
  - PNEUMONIA [None]
